FAERS Safety Report 13325494 (Version 1)
Quarter: 2017Q1

REPORT INFORMATION
  Report Type: Spontaneous
  Country: US (occurrence: US)
  Receive Date: 20170310
  Receipt Date: 20170310
  Transmission Date: 20170428
  Serious: No
  Sender: FDA-Public Use
  Company Number: US-PERRIGO-16US020145

PATIENT
  Age: 53 Year
  Sex: Male
  Weight: 90.7 kg

DRUGS (8)
  1. TESTOSTERONE CYPIONATE. [Suspect]
     Active Substance: TESTOSTERONE CYPIONATE
     Indication: BLOOD TESTOSTERONE DECREASED
     Dosage: 200 MG, SINGLE
     Route: 030
     Dates: start: 20160521, end: 20160521
  2. TESTOSTERONE CYPIONATE. [Suspect]
     Active Substance: TESTOSTERONE CYPIONATE
     Dosage: 200 MG, SINGLE
     Route: 030
     Dates: start: 20160613, end: 20160613
  3. TESTOSTERONE CYPIONATE. [Suspect]
     Active Substance: TESTOSTERONE CYPIONATE
     Dosage: 200 MG, SINGLE
     Route: 030
     Dates: start: 20160726, end: 20160726
  4. TESTOSTERONE CYPIONATE. [Suspect]
     Active Substance: TESTOSTERONE CYPIONATE
     Dosage: 200 MG, SINGLE
     Route: 030
     Dates: start: 20160817, end: 20160817
  5. TESTOSTERONE CYPIONATE. [Suspect]
     Active Substance: TESTOSTERONE CYPIONATE
     Dosage: 200 MG, SINGLE
     Route: 030
     Dates: start: 20160705, end: 20160705
  6. LIALDA [Concomitant]
     Active Substance: MESALAMINE
     Indication: INFLAMMATORY BOWEL DISEASE
     Dosage: UNK
     Route: 048
     Dates: start: 2012
  7. TESTOSTERONE CYPIONATE. [Suspect]
     Active Substance: TESTOSTERONE CYPIONATE
     Dosage: 200 MG, SINGLE
     Route: 030
     Dates: start: 20160915, end: 20160915
  8. TESTOSTERONE CYPIONATE. [Suspect]
     Active Substance: TESTOSTERONE CYPIONATE
     Dosage: 200 MG, SINGLE
     Route: 030
     Dates: start: 20160901, end: 20160901

REACTIONS (2)
  - Blood testosterone decreased [Unknown]
  - Drug effect decreased [Unknown]

NARRATIVE: CASE EVENT DATE: 20160606
